FAERS Safety Report 14076273 (Version 19)
Quarter: 2021Q4

REPORT INFORMATION
  Report Type: Spontaneous
  Country: ES (occurrence: ES)
  Receive Date: 20171011
  Receipt Date: 20211215
  Transmission Date: 20220303
  Serious: Yes (Hospitalization, Other)
  Sender: FDA-Public Use
  Company Number: ES-EMA-DD-20180523-KUMARNVEVHP-111645

PATIENT
  Age: 87 Year
  Sex: Male
  Weight: 87 kg

DRUGS (55)
  1. STELARA [Suspect]
     Active Substance: USTEKINUMAB
     Indication: Psoriasis
     Route: 058
     Dates: start: 20170803, end: 20170803
  2. STELARA [Suspect]
     Active Substance: USTEKINUMAB
     Indication: Erythrodermic psoriasis
     Dosage: 50 MG, CAPSULE
     Route: 058
     Dates: start: 20170728
  3. STELARA [Suspect]
     Active Substance: USTEKINUMAB
     Dosage: 50 MG, CAPSULE
     Route: 058
     Dates: start: 20170728, end: 20170728
  4. FLUCONAZOLE [Suspect]
     Active Substance: FLUCONAZOLE
     Indication: Product used for unknown indication
     Dosage: ON ALLOPURINOL FOR 6 YEARS
     Route: 042
     Dates: start: 20170810
  5. ALLOPURINOL [Suspect]
     Active Substance: ALLOPURINOL
     Indication: Hyperuricaemia
     Dosage: ON ALLOPURINOL FOR 6 YEARS
     Route: 065
     Dates: start: 20110101
  6. ACYCLOVIR [Suspect]
     Active Substance: ACYCLOVIR
     Indication: Erythrodermic psoriasis
     Dosage: TOTAL 1200 MG ONCE A DAY
     Route: 042
     Dates: start: 20170810
  7. ACYCLOVIR [Suspect]
     Active Substance: ACYCLOVIR
     Route: 042
     Dates: start: 20170810
  8. ACYCLOVIR [Suspect]
     Active Substance: ACYCLOVIR
     Route: 042
     Dates: start: 20170810
  9. CEFTRIAXONE [Suspect]
     Active Substance: CEFTRIAXONE
     Indication: Product used for unknown indication
     Route: 030
     Dates: start: 20170801, end: 20170812
  10. METAMIZOLE MAGNESIUM [Suspect]
     Active Substance: METAMIZOLE MAGNESIUM
     Indication: Product used for unknown indication
     Route: 042
     Dates: start: 20170801
  11. METAMIZOLE MAGNESIUM [Suspect]
     Active Substance: METAMIZOLE MAGNESIUM
     Route: 042
     Dates: start: 20170801
  12. METAMIZOLE MAGNESIUM [Suspect]
     Active Substance: METAMIZOLE MAGNESIUM
     Route: 042
     Dates: start: 20170801
  13. NEOTIGASON [Suspect]
     Active Substance: ACITRETIN
     Indication: Erythrodermic psoriasis
     Route: 065
     Dates: start: 20170728, end: 20170728
  14. NEOTIGASON [Suspect]
     Active Substance: ACITRETIN
     Route: 065
     Dates: start: 20170728, end: 20170728
  15. ACYCLOVIR [Suspect]
     Active Substance: ACYCLOVIR
     Indication: Erythrodermic psoriasis
     Dosage: TOTAL 1200 MG ONCE A DAY
     Route: 058
     Dates: start: 20170810
  16. ACYCLOVIR [Suspect]
     Active Substance: ACYCLOVIR
     Route: 042
     Dates: start: 20170810
  17. ACYCLOVIR [Suspect]
     Active Substance: ACYCLOVIR
     Route: 042
     Dates: start: 20170810
  18. METAMIZOLE SODIUM [Suspect]
     Active Substance: METAMIZOLE SODIUM
     Indication: Product used for unknown indication
     Route: 042
     Dates: start: 20170801
  19. METAMIZOLE SODIUM [Suspect]
     Active Substance: METAMIZOLE SODIUM
     Dosage: TOTAL 1200 MG ONCE A DAY.
     Route: 042
     Dates: start: 201708
  20. METAMIZOLE SODIUM [Suspect]
     Active Substance: METAMIZOLE SODIUM
     Dosage: 1 DF, Q8H (1200 MG QD)
     Route: 042
     Dates: start: 201708
  21. METAMIZOLE SODIUM [Suspect]
     Active Substance: METAMIZOLE SODIUM
     Indication: Product used for unknown indication
     Route: 042
     Dates: start: 20170801
  22. LANSOPRAZOLE [Concomitant]
     Active Substance: LANSOPRAZOLE
     Indication: Product used for unknown indication
     Route: 065
     Dates: start: 20170401
  23. ENALAPRIL [Concomitant]
     Active Substance: ENALAPRIL
     Indication: Product used for unknown indication
     Route: 065
  24. FUROSEMIDE [Concomitant]
     Active Substance: FUROSEMIDE
     Indication: Product used for unknown indication
     Dosage: 1.5 (60 MG/ DAY)
     Route: 065
     Dates: start: 20170802, end: 20170802
  25. ALDACTONE [Concomitant]
     Active Substance: SPIRONOLACTONE
     Indication: Product used for unknown indication
     Route: 065
     Dates: start: 20170802, end: 20170802
  26. SIMVASTATIN [Concomitant]
     Active Substance: SIMVASTATIN
     Indication: Product used for unknown indication
     Route: 065
  27. ALLOPURINOL [Concomitant]
     Active Substance: ALLOPURINOL
     Indication: Product used for unknown indication
     Route: 065
  28. PREDNISONE [Concomitant]
     Active Substance: PREDNISONE
     Indication: Product used for unknown indication
     Route: 065
     Dates: start: 20170801, end: 20170801
  29. TAMSULOSIN HYDROCHLORIDE [Concomitant]
     Active Substance: TAMSULOSIN HYDROCHLORIDE
     Indication: Product used for unknown indication
     Route: 065
  30. BILASTINE [Concomitant]
     Active Substance: BILASTINE
     Indication: Product used for unknown indication
     Route: 048
     Dates: start: 20170726, end: 20170726
  31. BILASTINE [Concomitant]
     Active Substance: BILASTINE
     Route: 048
     Dates: start: 20170726, end: 20170726
  32. BETAMETHASONE DIPROPIONATE\CALCIPOTRIENE HYDRATE [Concomitant]
     Active Substance: BETAMETHASONE DIPROPIONATE\CALCIPOTRIENE HYDRATE
     Indication: Product used for unknown indication
     Dosage: 1 DOSE
     Route: 065
     Dates: start: 20170401
  33. ACLIDINIUM BROMIDE [Concomitant]
     Active Substance: ACLIDINIUM BROMIDE
     Indication: Product used for unknown indication
     Dosage: 1 INHALATION
     Route: 055
  34. ACLIDINIUM BROMIDE [Concomitant]
     Active Substance: ACLIDINIUM BROMIDE
     Route: 055
  35. SALMETEROL [Concomitant]
     Active Substance: SALMETEROL
     Indication: Product used for unknown indication
     Dosage: 1 INHALATION
     Route: 055
  36. ACETAMINOPHEN [Concomitant]
     Active Substance: ACETAMINOPHEN
     Indication: Product used for unknown indication
     Dosage: TOTAL 1300 MG ONCE A DAY
     Route: 065
  37. RETINOL\TOCOPHEROL [Concomitant]
     Active Substance: RETINOL\TOCOPHEROL
     Indication: Product used for unknown indication
     Dosage: 1 DF,UNK
     Route: 048
     Dates: start: 201704, end: 20170726
  38. LORATADINE [Concomitant]
     Active Substance: LORATADINE
     Indication: Product used for unknown indication
     Route: 048
     Dates: start: 20170726
  39. LORATADINE [Concomitant]
     Active Substance: LORATADINE
     Route: 048
     Dates: start: 20170726
  40. ACITRETIN [Concomitant]
     Active Substance: ACITRETIN
     Indication: Product used for unknown indication
     Route: 065
     Dates: start: 20170728
  41. EUCERIN [Concomitant]
     Active Substance: ENSULIZOLE\EUCERIN\OCTINOXATE\OCTISALATE\TITANIUM DIOXIDE\ZINC OXIDE
     Indication: Product used for unknown indication
     Route: 065
  42. BETAMETHASONE DIPROPIONATE\GENTAMICIN SULFATE [Concomitant]
     Active Substance: BETAMETHASONE DIPROPIONATE\GENTAMICIN SULFATE
     Indication: Product used for unknown indication
     Dosage: 1 DF, FOR 10 DAYS
     Route: 061
  43. BETAMETHASONE DIPROPIONATE\GENTAMICIN SULFATE [Concomitant]
     Active Substance: BETAMETHASONE DIPROPIONATE\GENTAMICIN SULFATE
     Dosage: 1 DF, FOR 10 DAYS
     Route: 061
  44. BETAMETHASONE DIPROPIONATE\GENTAMICIN SULFATE [Concomitant]
     Active Substance: BETAMETHASONE DIPROPIONATE\GENTAMICIN SULFATE
     Route: 061
  45. BETAMETHASONE DIPROPIONATE\GENTAMICIN SULFATE [Concomitant]
     Active Substance: BETAMETHASONE DIPROPIONATE\GENTAMICIN SULFATE
     Route: 061
  46. BETAMETHASONE DIPROPIONATE\GENTAMICIN SULFATE [Concomitant]
     Active Substance: BETAMETHASONE DIPROPIONATE\GENTAMICIN SULFATE
     Route: 061
  47. BETAMETHASONE DIPROPIONATE\GENTAMICIN SULFATE [Concomitant]
     Active Substance: BETAMETHASONE DIPROPIONATE\GENTAMICIN SULFATE
     Route: 061
  48. HERBALS\JUNIPERUS COMMUNIS WHOLE [Concomitant]
     Active Substance: HERBALS\JUNIPERUS COMMUNIS WHOLE
     Indication: Product used for unknown indication
     Dosage: BATHROOMS WITH JUNIPER OIL ONCE A DAY FOR 20 MINUTES.
     Route: 065
  49. AZITHROMYCIN [Concomitant]
     Active Substance: AZITHROMYCIN
     Indication: Product used for unknown indication
     Route: 065
     Dates: start: 20170812, end: 20170812
  50. SALMETEROL [Concomitant]
     Active Substance: SALMETEROL
     Indication: Product used for unknown indication
     Dosage: 1 INHALATION
     Route: 065
  51. SPIRONOLACTONE [Concomitant]
     Active Substance: SPIRONOLACTONE
     Indication: Product used for unknown indication
     Dosage: TOTAL 1200 MG ONCE A DAY
     Route: 065
     Dates: start: 20170802
  52. EUCERIN [DL- LACTIC ACID] [Concomitant]
     Dosage: UNK UNK,UNK
     Route: 065
  53. ENALAPRIL AGEN [Concomitant]
     Indication: Product used for unknown indication
     Dosage: 5 MG, QD
  54. ENALAPRIL AGEN [Concomitant]
     Dosage: 5 MG, QD
  55. EUCERIN [SALICYLIC ACID] [Concomitant]
     Indication: Product used for unknown indication

REACTIONS (5)
  - Toxic epidermal necrolysis [Recovered/Resolved]
  - Oral candidiasis [Recovering/Resolving]
  - Fungal infection [Recovering/Resolving]
  - Off label use [Unknown]
  - Product use issue [Unknown]

NARRATIVE: CASE EVENT DATE: 20170101
